FAERS Safety Report 10075765 (Version 1)
Quarter: 2014Q2

REPORT INFORMATION
  Report Type: Spontaneous
  Country: US (occurrence: US)
  Receive Date: 20140414
  Receipt Date: 20140414
  Transmission Date: 20141212
  Serious: Yes (Hospitalization)
  Sender: FDA-Public Use
  Company Number: US-BAYER-2014-053499

PATIENT
  Age: 20 Year
  Sex: Female

DRUGS (6)
  1. YASMIN [Suspect]
  2. YAZ [Suspect]
  3. MOTRIN [Concomitant]
  4. SOLUMEDROL [Concomitant]
  5. TORADOL [Concomitant]
  6. LOTRISONE [Concomitant]

REACTIONS (1)
  - Deep vein thrombosis [Recovered/Resolved]
